FAERS Safety Report 4982449-1 (Version None)
Quarter: 2006Q2

REPORT INFORMATION
  Report Type: 
  Country: None (occurrence: None)
  Receive Date: 20060414
  Receipt Date: 20060414
  Transmission Date: 20061013
  Serious: Yes (Hospitalization)
  Sender: FDA-Public Use
  Company Number: 2006051523

PATIENT
  Age: 27 Year
  Sex: Female

DRUGS (6)
  1. NELFINAVIR MESILATE (NELFINAVIR MESILATE) [Suspect]
     Indication: ACQUIRED IMMUNODEFICIENCY SYNDROME
     Dates: start: 20020227
  2. EFAVIRENZ [Suspect]
     Indication: ACQUIRED IMMUNODEFICIENCY SYNDROME
     Dates: start: 20020227
  3. STAVUDINE [Suspect]
     Indication: ACQUIRED IMMUNODEFICIENCY SYNDROME
     Dates: start: 20020227
  4. SULFAMETOXAZOL MED TRIMETOPRIM (SULFAMETHOXAZOLE, TRIMETHOPRIM) [Concomitant]
  5. AZITHROMYCIN [Concomitant]
  6. PREDNISONE TAB [Concomitant]

REACTIONS (2)
  - IMMUNE RECONSTITUTION SYNDROME [None]
  - MYCOBACTERIUM KANSASII INFECTION [None]
